FAERS Safety Report 17856041 (Version 1)
Quarter: 2020Q2

REPORT INFORMATION
  Report Type: Report from Study
  Country: None (occurrence: TR)
  Receive Date: 20200603
  Receipt Date: 20200603
  Transmission Date: 20200714
  Serious: Yes (Other)
  Sender: FDA-Public Use
  Company Number: TR-ABBVIE-20K-161-3426213-00

PATIENT
  Age: 83 Year
  Sex: Female
  Weight: 54 kg

DRUGS (4)
  1. PK-MERZ [Concomitant]
     Active Substance: AMANTADINE
     Indication: PARKINSON^S DISEASE
     Route: 048
     Dates: start: 2015
  2. DUODOPA [Suspect]
     Active Substance: CARBIDOPA\LEVODOPA
     Indication: PARKINSON^S DISEASE
     Dosage: MORNING DOSE (ML): 3.70 CONTINUOUS  DOSE (ML): 2.20 EXTRA DOSE (ML): 0.50
     Route: 050
     Dates: start: 20171102
  3. MADOPAR HBS [Concomitant]
     Active Substance: BENSERAZIDE HYDROCHLORIDE\LEVODOPA
     Indication: PARKINSON^S DISEASE
     Route: 048
     Dates: start: 2017
  4. CEDRINA [Concomitant]
     Indication: DEPRESSION
     Route: 048
     Dates: start: 2017

REACTIONS (2)
  - Hip fracture [Recovered/Resolved]
  - Fall [Recovered/Resolved]

NARRATIVE: CASE EVENT DATE: 20200509
